FAERS Safety Report 11146898 (Version 1)
Quarter: 2015Q2

REPORT INFORMATION
  Report Type: Spontaneous
  Country: US (occurrence: None)
  Receive Date: 20150527
  Receipt Date: 20150527
  Transmission Date: 20150821
  Serious: Yes (Other)
  Sender: FDA-Public Use
  Company Number: None

PATIENT
  Age: 49 Year
  Sex: Male
  Weight: 80.74 kg

DRUGS (1)
  1. UP AND UP ALL DAY ALLERGY RELIEF [Suspect]
     Active Substance: CETIRIZINE HYDROCHLORIDE
     Indication: HYPERSENSITIVITY
     Route: 048
     Dates: start: 20150509, end: 20150516

REACTIONS (2)
  - Arrhythmia [None]
  - Rhinorrhoea [None]

NARRATIVE: CASE EVENT DATE: 20150509
